FAERS Safety Report 11088012 (Version 1)
Quarter: 2015Q2

REPORT INFORMATION
  Report Type: Spontaneous
  Country: US (occurrence: None)
  Receive Date: 20150501
  Receipt Date: 20150501
  Transmission Date: 20150821
  Serious: Yes (Hospitalization)
  Sender: FDA-Public Use
  Company Number: None

PATIENT
  Age: 88 Year
  Sex: Female
  Weight: 54 kg

DRUGS (2)
  1. CARBOPLATIN. [Suspect]
     Active Substance: CARBOPLATIN
     Dates: end: 20150409
  2. TAXOL [Suspect]
     Active Substance: PACLITAXEL
     Dates: end: 20150409

REACTIONS (6)
  - Chills [None]
  - Erythema [None]
  - Induration [None]
  - Injection site erythema [None]
  - Pyrexia [None]
  - Injection site swelling [None]

NARRATIVE: CASE EVENT DATE: 20150419
